FAERS Safety Report 4559190-2 (Version None)
Quarter: 2005Q1

REPORT INFORMATION
  Report Type: 
  Country: None (occurrence: None)
  Receive Date: 20050124
  Receipt Date: 20050110
  Transmission Date: 20050727
  Serious: Yes (Other)
  Sender: FDA-Public Use
  Company Number: DE-JNJFOC-20050102369

PATIENT
  Sex: Male

DRUGS (2)
  1. HALDOL [Suspect]
     Indication: ACUTE PSYCHOSIS
  2. DIPIPERON [Suspect]
     Indication: ACUTE PSYCHOSIS
     Route: 049

REACTIONS (1)
  - CIRCULATORY COLLAPSE [None]
